FAERS Safety Report 9219764 (Version 1)
Quarter: 2013Q2

REPORT INFORMATION
  Report Type: Spontaneous
  Country: FR (occurrence: FR)
  Receive Date: 20130409
  Receipt Date: 20130409
  Transmission Date: 20140414
  Serious: Yes (Other)
  Sender: FDA-Public Use
  Company Number: FR-ROXANE LABORATORIES, INC.-2013-RO-00446RO

PATIENT
  Age: 17 Year
  Sex: Male

DRUGS (2)
  1. PREDNISONE [Suspect]
     Indication: STILL^S DISEASE ADULT ONSET
  2. PARACETAMOL [Suspect]

REACTIONS (2)
  - Epstein-Barr virus infection [Not Recovered/Not Resolved]
  - Hepatitis [Unknown]
